FAERS Safety Report 23047335 (Version 1)
Quarter: 2023Q4

REPORT INFORMATION
  Report Type: Report from Study
  Country: NL (occurrence: NL)
  Receive Date: 20231010
  Receipt Date: 20231010
  Transmission Date: 20240109
  Serious: Yes (Hospitalization, Other)
  Sender: FDA-Public Use
  Company Number: NL-ABBVIE-5305011

PATIENT
  Sex: Female

DRUGS (16)
  1. CARBIDOPA\LEVODOPA [Suspect]
     Active Substance: CARBIDOPA\LEVODOPA
     Indication: Parkinson^s disease
     Dosage: MD: 4.0 ML, CD: 0.9 ML/H, ED: 1.0 ML?LAST ADMIN DATE 2023?REMAINS AT 16 HOURS
     Route: 050
     Dates: start: 20230515
  2. CARBIDOPA\LEVODOPA [Suspect]
     Active Substance: CARBIDOPA\LEVODOPA
     Dosage: MD: 4.8 ML; CD: 1.5 ML/H; ED: 1.2 ML
     Route: 050
  3. CARBIDOPA\LEVODOPA [Suspect]
     Active Substance: CARBIDOPA\LEVODOPA
     Dosage: MD: 4.5 ML, CD: 2.2 ML/H, ED: 1.0 ML, ?REMAINS AT 16 HOURS.?FIRST AND LAST ADMIN DATE 2023
     Route: 050
  4. CARBIDOPA\LEVODOPA [Suspect]
     Active Substance: CARBIDOPA\LEVODOPA
     Dosage: MD: 6.0 ML, CD: 2.0 ML/H, ED: 1.5 ML
     Route: 050
  5. CARBIDOPA\LEVODOPA [Suspect]
     Active Substance: CARBIDOPA\LEVODOPA
     Dosage: MD: 5.5ML; CD: 1.5ML/H; ED: 1.8ML?FIRST AND LAST ADMIN DATE 2023 ?REMAINS AT 16 HOURS
     Route: 050
  6. CARBIDOPA\LEVODOPA [Suspect]
     Active Substance: CARBIDOPA\LEVODOPA
     Dosage: MD: 5.0 ML, CD: 1.9 ML/H, ED: 1.0 ML
     Route: 050
  7. CARBIDOPA\LEVODOPA [Suspect]
     Active Substance: CARBIDOPA\LEVODOPA
     Dosage: MD: 4.0 ML; CD: 1.5 ML/H; ED: 1.2 ML?FIRST AND LAST ADMIN DATE 2023
     Route: 050
  8. CARBIDOPA\LEVODOPA [Suspect]
     Active Substance: CARBIDOPA\LEVODOPA
     Dosage: MD: 6.0 ML, CD: 2.2 ML/H, ED: 1.0 ML
     Route: 050
  9. CARBIDOPA\LEVODOPA [Suspect]
     Active Substance: CARBIDOPA\LEVODOPA
     Dosage: MD: 6.0 ML, CD: 2.2 ML/H, ED: 1.0 ML?REMAINS AT 16 HOURS?LAST ADMIN DATE 2023
     Route: 050
     Dates: start: 20230621
  10. CARBIDOPA\LEVODOPA [Suspect]
     Active Substance: CARBIDOPA\LEVODOPA
     Dosage: MD: 4.0 ML; CD: 1.5 ML/H; ED: 1.2 ML
     Route: 050
  11. CARBIDOPA\LEVODOPA [Suspect]
     Active Substance: CARBIDOPA\LEVODOPA
     Dosage: MD: 6.5 ML, CD: 2.0 ML/H, ED: 1.5 ML?REMAINS AT 16 HOURS?FIRST AND LAST ADMIN DATE 2023
     Route: 050
  12. CARBIDOPA\LEVODOPA [Suspect]
     Active Substance: CARBIDOPA\LEVODOPA
     Dosage: MD: 5.0 ML, CD: 1.9 ML/H, ED: 1.0 ML, ?REMAINS AT 16 HOURS?FIRST AND LAST ADMIN DATE 2023
     Route: 050
  13. CARBIDOPA\LEVODOPA [Suspect]
     Active Substance: CARBIDOPA\LEVODOPA
     Dosage: MD: 5.5ML; CD: 1.5ML/H; ED: 1.8ML
     Route: 050
  14. CARBIDOPA\LEVODOPA [Suspect]
     Active Substance: CARBIDOPA\LEVODOPA
     Dosage: MD: 6.0 ML, CD: 2.0 ML/H, ED: 1.5 ML?REMAINS AT 16 HOURS?FIRST AND LAST ADMIN DATE 2023
     Route: 050
  15. CARBIDOPA\LEVODOPA [Suspect]
     Active Substance: CARBIDOPA\LEVODOPA
     Dosage: MD: 5.0 ML, CD: 1.9 ML/H, ED: 1.0 ML?REMAINS AT 16 HOURS?FIRST ADMIN DATE 2023
     Route: 050
  16. ENTACAPONE [Concomitant]
     Active Substance: ENTACAPONE
     Indication: Product used for unknown indication

REACTIONS (40)
  - Dyskinesia [Not Recovered/Not Resolved]
  - Fatigue [Not Recovered/Not Resolved]
  - Freezing phenomenon [Recovering/Resolving]
  - Unevaluable event [Not Recovered/Not Resolved]
  - Abnormal dreams [Not Recovered/Not Resolved]
  - Therapeutic response shortened [Not Recovered/Not Resolved]
  - Hyperkinesia [Not Recovered/Not Resolved]
  - Neurotransmitter level altered [Not Recovered/Not Resolved]
  - Dystonia [Not Recovered/Not Resolved]
  - Foot deformity [Not Recovered/Not Resolved]
  - Fall [Not Recovered/Not Resolved]
  - Asthenia [Not Recovered/Not Resolved]
  - Decreased activity [Not Recovered/Not Resolved]
  - Parkinson^s disease [Recovered/Resolved]
  - Oedema [Unknown]
  - Tremor [Not Recovered/Not Resolved]
  - Stress [Not Recovered/Not Resolved]
  - Gastric pH decreased [Recovered/Resolved]
  - Dyspnoea [Not Recovered/Not Resolved]
  - Constipation [Recovered/Resolved]
  - Muscle rigidity [Recovering/Resolving]
  - Therapeutic product effect incomplete [Unknown]
  - Anxiety [Not Recovered/Not Resolved]
  - Weight decreased [Not Recovered/Not Resolved]
  - Decreased appetite [Not Recovered/Not Resolved]
  - Cognitive disorder [Not Recovered/Not Resolved]
  - Motor dysfunction [Not Recovered/Not Resolved]
  - Dizziness [Not Recovered/Not Resolved]
  - Cough [Not Recovered/Not Resolved]
  - On and off phenomenon [Not Recovered/Not Resolved]
  - Chest pain [Not Recovered/Not Resolved]
  - Hypoaesthesia [Not Recovered/Not Resolved]
  - Fall [Recovered/Resolved]
  - Breast pain [Not Recovered/Not Resolved]
  - Palpitations [Unknown]
  - Mental disorder [Not Recovered/Not Resolved]
  - Gastrointestinal disorder [Unknown]
  - Sleep disorder [Unknown]
  - Deep brain stimulation [Unknown]
  - Vitamin B1 deficiency [Unknown]

NARRATIVE: CASE EVENT DATE: 20230101
